FAERS Safety Report 12802110 (Version 1)
Quarter: 2016Q4

REPORT INFORMATION
  Report Type: Spontaneous
  Country: US (occurrence: US)
  Receive Date: 20161003
  Receipt Date: 20161003
  Transmission Date: 20170207
  Serious: No
  Sender: FDA-Public Use
  Company Number: US-JAZZ-2016-US-012214

PATIENT
  Sex: Male

DRUGS (13)
  1. XYREM [Suspect]
     Active Substance: SODIUM OXYBATE
     Dosage: DOSE ADJUSTMENTS
     Route: 048
     Dates: start: 201210, end: 201504
  2. LISINOPRIL. [Concomitant]
     Active Substance: LISINOPRIL
  3. ASACOL HD [Concomitant]
     Active Substance: MESALAMINE
  4. NUVIGIL [Concomitant]
     Active Substance: ARMODAFINIL
  5. LAMICTAL [Concomitant]
     Active Substance: LAMOTRIGINE
  6. LIALDA [Concomitant]
     Active Substance: MESALAMINE
  7. ABILIFY [Concomitant]
     Active Substance: ARIPIPRAZOLE
  8. EPIDUO [Concomitant]
     Active Substance: ADAPALENE\BENZOYL PEROXIDE
  9. XYREM [Suspect]
     Active Substance: SODIUM OXYBATE
     Dosage: 4.5 G, BID
     Route: 048
     Dates: start: 201504
  10. DORYX [Concomitant]
     Active Substance: DOXYCYCLINE HYCLATE
  11. XYREM [Suspect]
     Active Substance: SODIUM OXYBATE
     Indication: NARCOLEPSY
     Dosage: 2.25 G, BID
     Route: 048
     Dates: start: 201203, end: 201210
  12. ADDERALL XR [Concomitant]
     Active Substance: AMPHETAMINE ASPARTATE\AMPHETAMINE SULFATE\DEXTROAMPHETAMINE SACCHARATE\DEXTROAMPHETAMINE SULFATE
  13. URSODIOL. [Concomitant]
     Active Substance: URSODIOL

REACTIONS (1)
  - Hyperhidrosis [Not Recovered/Not Resolved]
